FAERS Safety Report 8732904 (Version 3)
Quarter: 2012Q4

REPORT INFORMATION
  Report Type: 
  Country: JP (occurrence: JP)
  Receive Date: 20120820
  Receipt Date: 20120829
  Transmission Date: 20130627
  Serious: Yes (Death, Other)
  Sender: FDA-Public Use
  Company Number: JP-PFIZER INC-2012198953

PATIENT
  Age: 51 Year
  Sex: Male
  Weight: 57.7 kg

DRUGS (8)
  1. DOXORUBICIN HCL [Suspect]
     Indication: LYMPHOMA
     Dosage: 80 mg, UNK
  2. SOLU-MEDROL [Suspect]
     Indication: B-CELL LYMPHOMA
     Dosage: 250 mg/day
  3. SOLU-MEDROL [Suspect]
     Dosage: 60 mg/day
  4. CYCLOPHOSPHAMIDE [Suspect]
     Indication: LYMPHOMA
     Dosage: 1200 mg, UNK
  5. VINCRISTINE [Suspect]
     Indication: LYMPHOMA
     Dosage: 2 mg, UNK
  6. ALLOPURINOL [Suspect]
     Indication: TUMOUR LYSIS SYNDROME
     Dosage: 200 mg/day
  7. ALLOPURINOL [Suspect]
     Dosage: 300 mg/day
  8. SODIUM BICARBONATE [Suspect]
     Indication: METABOLIC ACIDOSIS

REACTIONS (6)
  - Gastrointestinal haemorrhage [Fatal]
  - Tumour lysis syndrome [Not Recovered/Not Resolved]
  - Disseminated intravascular coagulation [Not Recovered/Not Resolved]
  - Hypophosphataemia [Unknown]
  - Metabolic acidosis [Unknown]
  - Hyperphosphataemia [Unknown]
